FAERS Safety Report 6714495-1 (Version None)
Quarter: 2010Q2

REPORT INFORMATION
  Report Type: 
  Country: None (occurrence: None)
  Receive Date: 20100506
  Receipt Date: 20100427
  Transmission Date: 20101027
  Serious: Yes (Life-Threatening, Hospitalization, Disabling, Other)
  Sender: FDA-Public Use
  Company Number: CA-AMGEN-QUU408767

PATIENT
  Age: 59 Year
  Sex: Male
  Weight: 90.8 kg

DRUGS (5)
  1. ENBREL [Suspect]
     Indication: DRUG USE FOR UNKNOWN INDICATION
  2. METHOTREXATE [Suspect]
     Route: 058
  3. ADVAIR DISKUS 100/50 [Concomitant]
  4. CRESTOR [Concomitant]
     Route: 048
  5. VENTOLIN [Concomitant]

REACTIONS (6)
  - BACTERAEMIA [None]
  - CEREBRAL ARTERY EMBOLISM [None]
  - CEREBROVASCULAR ACCIDENT [None]
  - ENDOCARDITIS BACTERIAL [None]
  - MITRAL VALVE DISEASE [None]
  - STAPHYLOCOCCAL INFECTION [None]
